FAERS Safety Report 11126925 (Version 2)
Quarter: 2015Q2

REPORT INFORMATION
  Report Type: Spontaneous
  Country: TR (occurrence: TR)
  Receive Date: 20150520
  Receipt Date: 20150522
  Transmission Date: 20150821
  Serious: Yes (Hospitalization, Other)
  Sender: FDA-Public Use
  Company Number: TR-ALLERGAN-1509054US

PATIENT
  Age: 79 Year
  Sex: Male

DRUGS (3)
  1. OKACIN [Concomitant]
     Indication: PRODUCT USED FOR UNKNOWN INDICATION
     Dosage: 5 TIMES DAILY
     Route: 061
  2. PRED FORTE [Suspect]
     Active Substance: PREDNISOLONE ACETATE
     Indication: PRODUCT USED FOR UNKNOWN INDICATION
     Dosage: HOURLY FOR THE FIRST DAY
  3. PRED FORTE [Suspect]
     Active Substance: PREDNISOLONE ACETATE
     Dosage: 5 TIMES DAILY

REACTIONS (8)
  - Corneal oedema [Unknown]
  - Intraocular pressure increased [Unknown]
  - Conjunctival hyperaemia [Unknown]
  - Visual acuity reduced [Unknown]
  - Ocular hyperaemia [Unknown]
  - Eye pain [Unknown]
  - Angle closure glaucoma [Unknown]
  - Flat anterior chamber of eye [Unknown]
